FAERS Safety Report 20561405 (Version 1)
Quarter: 2022Q1

REPORT INFORMATION
  Report Type: Spontaneous
  Country: GB (occurrence: GB)
  Receive Date: 20220307
  Receipt Date: 20220307
  Transmission Date: 20220424
  Serious: Yes (Life-Threatening)
  Sender: FDA-Public Use
  Company Number: None

PATIENT
  Age: 41 Year
  Sex: Female
  Weight: 57 kg

DRUGS (10)
  1. COTRIMOXAZOLE [Suspect]
     Active Substance: SULFAMETHOXAZOLE\TRIMETHOPRIM
     Indication: Allergy test
     Dosage: 196 MG (2 ML)
     Route: 042
     Dates: start: 20191218, end: 20191218
  2. LEUCOVORIN CALCIUM [Concomitant]
     Active Substance: LEUCOVORIN CALCIUM
     Indication: Product used for unknown indication
     Dosage: 15 MG, QD
     Route: 048
  3. LANSOPRAZOLE [Concomitant]
     Active Substance: LANSOPRAZOLE
     Indication: Product used for unknown indication
     Dosage: 30 MG, QD
     Route: 065
  4. HYDROMOL [Concomitant]
     Indication: Product used for unknown indication
     Dosage: 3 DF, QD ((08:00, 14:00, 22:00) REGULAR ACUTE ISSUES ON SCR)
     Route: 065
  5. CYCLIZINE HYDROCHLORIDE [Concomitant]
     Active Substance: CYCLIZINE HYDROCHLORIDE
     Indication: Product used for unknown indication
     Dosage: MINIMUM DOSAGE INTERVAL 4 HOURS UP TO 150 MG PER DAY
     Route: 065
  6. ACETAMINOPHEN [Concomitant]
     Active Substance: ACETAMINOPHEN
     Indication: Analgesic therapy
     Dosage: UNK, PRN (500 TO 1000 MG,  DOSAGE INTERVAL 4 HOURS UP TO 3000 MG EVERY 24 HOURS)
     Route: 065
  7. ISOPROPYL MYRISTATE\PARAFFIN [Concomitant]
     Active Substance: ISOPROPYL MYRISTATE\PARAFFIN
     Indication: Product used for unknown indication
     Dosage: 2 DF, QD (08:00, 18:00)
     Route: 061
  8. DEXAMETHASONE [Concomitant]
     Active Substance: DEXAMETHASONE
     Indication: Product used for unknown indication
     Dosage: 4 DRP, QD (08:00, 18:00) REDUCED TO BD IN EYE CLINIC
     Route: 065
  9. CLINDAMYCIN [Concomitant]
     Active Substance: CLINDAMYCIN
     Indication: Product used for unknown indication
     Dosage: 1800 MG, QD (08:00, 14:00, 22:00)
     Route: 048
  10. PYRIMETHAMINE [Concomitant]
     Active Substance: PYRIMETHAMINE
     Indication: Product used for unknown indication
     Dosage: 25 MG, QD
     Route: 065

REACTIONS (6)
  - Pyrexia [Recovered/Resolved]
  - Feeling abnormal [Recovered/Resolved]
  - Back pain [Recovered/Resolved]
  - Vision blurred [Recovered/Resolved]
  - Chills [Recovered/Resolved]
  - Oropharyngeal discomfort [Recovered/Resolved]

NARRATIVE: CASE EVENT DATE: 20191218
